FAERS Safety Report 17001805 (Version 1)
Quarter: 2019Q4

REPORT INFORMATION
  Report Type: Spontaneous
  Country: FR (occurrence: FR)
  Receive Date: 20191106
  Receipt Date: 20191106
  Transmission Date: 20200122
  Serious: Yes (Other)
  Sender: FDA-Public Use
  Company Number: FR-US-PROVELL PHARMACEUTICALS LLC-9017140

PATIENT
  Age: 44 Year
  Sex: Female

DRUGS (2)
  1. LEVOTHYROX NF [Suspect]
     Active Substance: LEVOTHYROXINE SODIUM
     Indication: PRODUCT USED FOR UNKNOWN INDICATION
     Dosage: 175 UNITS UNSPECIFIED
     Dates: start: 201704, end: 20171002
  2. LEVOTHYROX NF [Suspect]
     Active Substance: LEVOTHYROXINE SODIUM
     Dosage: 12.5 UNITS UNSPECIFIED
     Dates: start: 201704, end: 201709

REACTIONS (34)
  - Pain in extremity [Unknown]
  - Anxiety [Unknown]
  - Angina pectoris [Unknown]
  - Myalgia [Unknown]
  - Eczema [Unknown]
  - Dysstasia [Unknown]
  - Insomnia [Unknown]
  - Pain [Unknown]
  - Flatulence [Unknown]
  - Social avoidant behaviour [Unknown]
  - Fatigue [Recovering/Resolving]
  - Impaired work ability [Recovered/Resolved]
  - Hypertrichosis [Unknown]
  - Mental fatigue [Unknown]
  - Abdominal pain upper [Unknown]
  - Mobility decreased [Unknown]
  - Musculoskeletal pain [Unknown]
  - Headache [Unknown]
  - Major depression [Unknown]
  - Chest pain [Unknown]
  - Feeling abnormal [Unknown]
  - Memory impairment [Unknown]
  - Asthenia [Unknown]
  - Gingival bleeding [Unknown]
  - Weight increased [Unknown]
  - Alopecia [Unknown]
  - Arthralgia [Recovering/Resolving]
  - Dyspepsia [Unknown]
  - Nail discolouration [Unknown]
  - Impaired driving ability [Unknown]
  - Burnout syndrome [Unknown]
  - Neck pain [Unknown]
  - Constipation [Unknown]
  - Blood thyroid stimulating hormone decreased [Not Recovered/Not Resolved]

NARRATIVE: CASE EVENT DATE: 201704
